FAERS Safety Report 17541056 (Version 1)
Quarter: 2020Q1

REPORT INFORMATION
  Report Type: Report from Study
  Country: None (occurrence: CO)
  Receive Date: 20200314
  Receipt Date: 20200314
  Transmission Date: 20200409
  Serious: Yes (Disabling)
  Sender: FDA-Public Use
  Company Number: CO-ABBVIE-20K-036-3319634-00

PATIENT
  Age: 53 Year
  Sex: Female
  Weight: 48 kg

DRUGS (2)
  1. HUMIRA [Suspect]
     Active Substance: ADALIMUMAB
     Indication: RHEUMATOID ARTHRITIS
     Route: 058
     Dates: start: 20131108
  2. HUMIRA [Suspect]
     Active Substance: ADALIMUMAB
     Indication: RHEUMATOID ARTHRITIS
     Dosage: HUMIRA AC
     Route: 058
     Dates: end: 20190912

REACTIONS (1)
  - Uveitis [Recovering/Resolving]

NARRATIVE: CASE EVENT DATE: 202002
